FAERS Safety Report 5048991-2 (Version None)
Quarter: 2006Q3

REPORT INFORMATION
  Report Type: 
  Country: None (occurrence: None)
  Receive Date: 20060712
  Receipt Date: 20051111
  Transmission Date: 20061208
  Serious: No
  Sender: FDA-Public Use
  Company Number: US-GLAXOSMITHKLINE-A0581942A

PATIENT
  Age: 38 Year
  Sex: Male
  Weight: 71.8 kg

DRUGS (3)
  1. IMITREX [Suspect]
     Indication: MIGRAINE
     Dosage: 100MG AS REQUIRED
     Route: 048
     Dates: start: 20051109
  2. ATENOLOL [Concomitant]
  3. PREVACID [Concomitant]

REACTIONS (2)
  - CHEST PAIN [None]
  - PAIN IN JAW [None]
